FAERS Safety Report 13126568 (Version 1)
Quarter: 2017Q1

REPORT INFORMATION
  Report Type: Spontaneous
  Country: US (occurrence: US)
  Receive Date: 20170118
  Receipt Date: 20170118
  Transmission Date: 20170428
  Serious: Yes (Other)
  Sender: FDA-Public Use
  Company Number: US-ROCHE-1674354

PATIENT
  Sex: Male

DRUGS (2)
  1. RITUXAN [Suspect]
     Active Substance: RITUXIMAB
     Indication: PRODUCT USED FOR UNKNOWN INDICATION
     Route: 042
  2. DEMEROL [Concomitant]
     Active Substance: MEPERIDINE HYDROCHLORIDE

REACTIONS (2)
  - Respiratory distress [Recovered/Resolved]
  - Chills [Recovered/Resolved]
